FAERS Safety Report 15607232 (Version 1)
Quarter: 2018Q4

REPORT INFORMATION
  Report Type: Spontaneous
  Country: US (occurrence: US)
  Receive Date: 20181112
  Receipt Date: 20181112
  Transmission Date: 20190205
  Serious: No
  Sender: FDA-Public Use
  Company Number: None

PATIENT
  Age: 28 Year
  Sex: Female
  Weight: 92.25 kg

DRUGS (5)
  1. AIMOVIG [Suspect]
     Active Substance: ERENUMAB-AOOE
     Indication: MIGRAINE PROPHYLAXIS
     Dosage: ?          QUANTITY:1 INJECTION(S);OTHER FREQUENCY:ONCE MONTHLY;?
     Route: 030
     Dates: start: 20181015
  2. RELPAX [Concomitant]
     Active Substance: ELETRIPTAN HYDROBROMIDE
  3. OMEPRAZOLE. [Concomitant]
     Active Substance: OMEPRAZOLE
  4. VITAMIN B2 [Concomitant]
     Active Substance: RIBOFLAVIN
  5. MAGNESIUM [Concomitant]
     Active Substance: MAGNESIUM

REACTIONS (8)
  - Sinus disorder [None]
  - Nausea [None]
  - Fatigue [None]
  - Migraine [None]
  - Condition aggravated [None]
  - Vision blurred [None]
  - Headache [None]
  - Dizziness [None]

NARRATIVE: CASE EVENT DATE: 20181015
